FAERS Safety Report 4376843-X (Version None)
Quarter: 2004Q2

REPORT INFORMATION
  Report Type: 
  Country: None (occurrence: None)
  Receive Date: 20040609
  Receipt Date: 20040326
  Transmission Date: 20050107
  Serious: Yes (Hospitalization)
  Sender: FDA-Public Use
  Company Number: PHEH2003US02766

PATIENT
  Age: 51 Year
  Sex: Male
  Weight: 138.3 kg

DRUGS (9)
  1. GLEEVEC [Suspect]
     Indication: CHRONIC MYELOID LEUKAEMIA
     Dosage: 100 + 150 + 300 + 400 MG, QD
     Dates: start: 20021001, end: 20021201
  2. GLEEVEC [Suspect]
     Indication: CHRONIC MYELOID LEUKAEMIA
     Dosage: 100 + 150 + 300 + 400 MG, QD
     Dates: start: 20030101, end: 20030331
  3. GLEEVEC [Suspect]
     Indication: CHRONIC MYELOID LEUKAEMIA
     Dosage: 100 + 150 + 300 + 400 MG, QD
     Dates: end: 20040101
  4. GLEEVEC [Suspect]
     Indication: CHRONIC MYELOID LEUKAEMIA
     Dosage: 100 + 150 + 300 + 400 MG, QD
     Dates: end: 20040304
  5. AMIODARONE HCL [Concomitant]
  6. ZOCOR [Concomitant]
  7. PROTONIX [Concomitant]
  8. LEVOTHYROXINE SODIUM [Concomitant]
  9. ASA TABS [Concomitant]

REACTIONS (12)
  - BONE PAIN [None]
  - CHRONIC MYELOID LEUKAEMIA [None]
  - DIZZINESS [None]
  - DRUG RESISTANCE [None]
  - ERYTHEMA [None]
  - HEADACHE [None]
  - INSOMNIA [None]
  - MALIGNANT NEOPLASM PROGRESSION [None]
  - MUSCLE CRAMP [None]
  - OROPHARYNGEAL SWELLING [None]
  - PRURITUS [None]
  - URTICARIA [None]
